FAERS Safety Report 13501121 (Version 3)
Quarter: 2018Q2

REPORT INFORMATION
  Report Type: Spontaneous
  Country: US (occurrence: US)
  Receive Date: 20170501
  Receipt Date: 20180507
  Transmission Date: 20180711
  Serious: No
  Sender: FDA-Public Use
  Company Number: US-ROCHE-1877231

PATIENT
  Age: 52 Year
  Sex: Male

DRUGS (4)
  1. ESBRIET [Suspect]
     Active Substance: PIRFENIDONE
     Route: 048
     Dates: start: 2016
  2. ESBRIET [Suspect]
     Active Substance: PIRFENIDONE
     Dosage: FOR FEW WEEKS.
     Route: 048
  3. ESBRIET [Suspect]
     Active Substance: PIRFENIDONE
     Indication: IDIOPATHIC PULMONARY FIBROSIS
     Route: 048
     Dates: start: 20160310
  4. ESBRIET [Suspect]
     Active Substance: PIRFENIDONE
     Route: 048
     Dates: start: 201605

REACTIONS (4)
  - Insomnia [Unknown]
  - Muscle spasms [Unknown]
  - Dyspepsia [Unknown]
  - Cough [Unknown]

NARRATIVE: CASE EVENT DATE: 20170430
